FAERS Safety Report 6580397-7 (Version None)
Quarter: 2010Q1

REPORT INFORMATION
  Report Type: 
  Country: None (occurrence: None)
  Receive Date: 20100212
  Receipt Date: 20100203
  Transmission Date: 20100710
  Serious: Yes (Hospitalization)
  Sender: FDA-Public Use
  Company Number: PHHY2010MX06356

PATIENT
  Age: 72 Year
  Sex: Female

DRUGS (3)
  1. DIOVAN HCT [Suspect]
     Indication: HYPERTENSION
     Dosage: 2 TABLETS (160/25 MG)PER DAY
     Dates: start: 20031101, end: 20100101
  2. RANISEN [Concomitant]
  3. TENORMIN [Concomitant]

REACTIONS (2)
  - GASTRITIS [None]
  - HERPES VIRUS INFECTION [None]
